FAERS Safety Report 20893804 (Version 1)
Quarter: 2022Q2

REPORT INFORMATION
  Report Type: Spontaneous
  Country: US (occurrence: US)
  Receive Date: 20220531
  Receipt Date: 20220531
  Transmission Date: 20220721
  Serious: No
  Sender: FDA-Public Use
  Company Number: US-SERVIER-S22005041

PATIENT

DRUGS (1)
  1. ONCASPAR [Suspect]
     Active Substance: PEGASPARGASE
     Indication: Leukaemia
     Dosage: UNK
     Route: 042
     Dates: start: 20220214, end: 202202

REACTIONS (1)
  - Enzyme activity decreased [Recovered/Resolved]

NARRATIVE: CASE EVENT DATE: 20220201
